FAERS Safety Report 25722745 (Version 1)
Quarter: 2025Q3

REPORT INFORMATION
  Report Type: Spontaneous
  Country: CA (occurrence: CA)
  Receive Date: 20250825
  Receipt Date: 20250825
  Transmission Date: 20251020
  Serious: Yes (Other)
  Sender: FRESENIUS KABI
  Company Number: CA-FreseniusKabi-FK202417014

PATIENT
  Age: 52 Year
  Sex: Male

DRUGS (23)
  1. OXALIPLATIN [Suspect]
     Active Substance: OXALIPLATIN
     Indication: Pancreatic carcinoma metastatic
     Route: 065
  2. GEMCITABINE HYDROCHLORIDE [Suspect]
     Active Substance: GEMCITABINE HYDROCHLORIDE
     Indication: Pancreatic carcinoma metastatic
  3. CAPECITABINE [Suspect]
     Active Substance: CAPECITABINE
     Indication: Pancreatic carcinoma metastatic
  4. DOCETAXEL [Suspect]
     Active Substance: DOCETAXEL
     Indication: Product used for unknown indication
  5. KEYTRUDA [Suspect]
     Active Substance: PEMBROLIZUMAB
     Indication: Pancreatic carcinoma metastatic
  6. LORBRENA [Suspect]
     Active Substance: LORLATINIB
     Indication: Pancreatic carcinoma metastatic
  7. PEMETREXED [Suspect]
     Active Substance: PEMETREXED
     Indication: Pancreatic carcinoma metastatic
  8. TRASTUZUMAB [Suspect]
     Active Substance: TRASTUZUMAB
     Indication: Pancreatic carcinoma metastatic
  9. PERTUZUMAB [Concomitant]
     Active Substance: PERTUZUMAB
     Indication: Product used for unknown indication
  10. OSIMERTINIB [Concomitant]
     Active Substance: OSIMERTINIB
     Indication: Product used for unknown indication
  11. enterctinib [Concomitant]
     Indication: Product used for unknown indication
  12. embocept (AMILOMER) [Concomitant]
     Indication: Product used for unknown indication
  13. DEMCIZUMAB [Concomitant]
     Active Substance: DEMCIZUMAB
     Indication: Product used for unknown indication
  14. BEVACIZUMAB [Concomitant]
     Active Substance: BEVACIZUMAB
     Indication: Product used for unknown indication
     Route: 042
  15. PACLITAXEL [Concomitant]
     Active Substance: PACLITAXEL
     Indication: Product used for unknown indication
  16. MITOMYCIN [Concomitant]
     Active Substance: MITOMYCIN
     Indication: Product used for unknown indication
  17. LIPIODOL ULTRA FLUID 38 PERCENT (ETHIODIZED OIL) [Concomitant]
     Indication: Product used for unknown indication
  18. IRINOTECAN HYDROCHLORIDE [Concomitant]
     Active Substance: IRINOTECAN HYDROCHLORIDE
     Indication: Product used for unknown indication
  19. LEUCOVORIN CALCIUM [Concomitant]
     Active Substance: LEUCOVORIN CALCIUM
     Indication: Product used for unknown indication
  20. FLUOROURACIL [Concomitant]
     Active Substance: FLUOROURACIL
     Indication: Product used for unknown indication
  21. ENHERTU [Concomitant]
     Active Substance: FAM-TRASTUZUMAB DERUXTECAN-NXKI
     Indication: Product used for unknown indication
  22. CISPLATIN [Concomitant]
     Active Substance: CISPLATIN
     Indication: Product used for unknown indication
     Route: 042
  23. ALUNBRIG [Concomitant]
     Active Substance: BRIGATINIB
     Indication: Product used for unknown indication

REACTIONS (2)
  - Pancytopenia [Unknown]
  - Off label use [Unknown]
